FAERS Safety Report 8762855 (Version 1)
Quarter: 2012Q4

REPORT INFORMATION
  Report Type: 
  Country: US (occurrence: US)
  Receive Date: 20120904
  Receipt Date: 20120904
  Transmission Date: 20130627
  Serious: Yes (Other)
  Sender: FDA-Public Use
  Company Number: US-PFIZER INC-2010144170

PATIENT
  Age: 59 Year
  Sex: Male
  Weight: 98.41 kg

DRUGS (6)
  1. CHANTIX [Suspect]
     Indication: SMOKING CESSATION THERAPY
     Dosage: 0.5 mg, 1x/day
     Route: 048
     Dates: start: 2007, end: 2008
  2. PRILOSEC [Concomitant]
     Dosage: 20 mg, UNK
  3. PLAVIX [Concomitant]
     Indication: CARDIAC DISORDER
     Dosage: UNK
  4. AMLODIPINE [Concomitant]
     Indication: HYPERTENSION
     Dosage: 5 mg, UNK
  5. XANAX [Concomitant]
     Indication: SLEEP DISORDER
     Dosage: 1 mg, UNK
  6. AMBIEN [Concomitant]
     Indication: SLEEP DISORDER
     Dosage: 10 mg, UNK

REACTIONS (2)
  - Cardiac disorder [Unknown]
  - Stress [Unknown]
